FAERS Safety Report 18923297 (Version 1)
Quarter: 2021Q1

REPORT INFORMATION
  Report Type: Spontaneous
  Country: TR (occurrence: TR)
  Receive Date: 20210222
  Receipt Date: 20210222
  Transmission Date: 20210420
  Serious: Yes (Other)
  Sender: FDA-Public Use
  Company Number: TR-CELLTRION-2021-TR-000019

PATIENT
  Age: 68 Year
  Sex: Male

DRUGS (3)
  1. UNSPECIFIED ANTIDIABETIC MEDICATION [Concomitant]
     Indication: DIABETES MELLITUS
     Route: 048
  2. PREGABALIN (NON?SPECIFIC) [Suspect]
     Active Substance: PREGABALIN
     Indication: NEURALGIA
     Dosage: 75 MG AT NIGHT FOR 3 DAYS, THEN 150 MG DAILY (IN TWO DVIDED DOSES); INCREASED AFTER 15 DAYS TO 300 M
  3. UNSPECIFIED ANTIHYPERTENSIVE MEDICATION [Concomitant]
     Indication: HYPERTENSION

REACTIONS (1)
  - Deafness [Unknown]
